FAERS Safety Report 7412959-9 (Version None)
Quarter: 2011Q2

REPORT INFORMATION
  Report Type: 
  Country: None (occurrence: None)
  Receive Date: 20110413
  Receipt Date: 20110404
  Transmission Date: 20111010
  Serious: Yes (Hospitalization, Other)
  Sender: FDA-Public Use
  Company Number: US-ASTRAZENECA-2011SE11725

PATIENT
  Age: 65 Year
  Sex: Male

DRUGS (4)
  1. PRILOSEC DELAYED RELEASE [Suspect]
     Route: 048
  2. PRILOSEC OTC [Suspect]
     Route: 048
  3. NEXIUM [Suspect]
     Route: 048
  4. METFORMIN [Concomitant]

REACTIONS (9)
  - DRUG INEFFECTIVE [None]
  - DRUG DOSE OMISSION [None]
  - DYSPEPSIA [None]
  - PROSTATE INFECTION [None]
  - PROSTATOMEGALY [None]
  - FLATULENCE [None]
  - ABDOMINAL HERNIA [None]
  - SINUSITIS [None]
  - ANAL HAEMORRHAGE [None]
